FAERS Safety Report 19934520 (Version 2)
Quarter: 2021Q4

REPORT INFORMATION
  Report Type: Spontaneous
  Country: CN (occurrence: CN)
  Receive Date: 20211008
  Receipt Date: 20211011
  Transmission Date: 20220303
  Serious: Yes (Other)
  Sender: FDA-Public Use
  Company Number: CN-BAXTER-2021BAX024947

PATIENT
  Age: 60 Year
  Sex: Male
  Weight: 59 kg

DRUGS (9)
  1. CYCLOPHOSPHAMIDE [Suspect]
     Active Substance: CYCLOPHOSPHAMIDE
     Indication: Follicular lymphoma
     Dosage: PRIOR (1ST TWO CYCLES OF BIOLOGICAL CHEMOTHERAPY);
     Route: 041
  2. CYCLOPHOSPHAMIDE [Suspect]
     Active Substance: CYCLOPHOSPHAMIDE
     Dosage: DAY 1; CYCLOPHOSPHAMIDE FOR INJECTION (1.2G) + 0.9% NS (500ML); 3RD CYCLE^
     Route: 041
     Dates: start: 20190411, end: 20190411
  3. SODIUM CHLORIDE [Suspect]
     Active Substance: SODIUM CHLORIDE
     Indication: Medication dilution
     Dosage: DAY 1; DILUENT FOR CYCLOPHOSPHAMIDE; 3RD CYCLE
     Route: 041
     Dates: start: 20190411, end: 20190411
  4. SODIUM CHLORIDE [Suspect]
     Active Substance: SODIUM CHLORIDE
     Dosage: DAY 1; DILUENT FOR VINDESINE ; 3RD CYCLE;
     Route: 040
     Dates: start: 20190411, end: 20190411
  5. SODIUM CHLORIDE [Suspect]
     Active Substance: SODIUM CHLORIDE
     Dosage: DAY1 TO DAY3; DILUENT FOR ETOPOSIDE; 3RD CYCLE;
     Route: 041
     Dates: start: 20190411, end: 20190413
  6. VINDESINE SULFATE [Suspect]
     Active Substance: VINDESINE SULFATE
     Indication: Follicular lymphoma
     Dosage: PRIOR (1ST TWO CYCLES OF BIOLOGICAL CHEMOTHERAPY);
     Route: 040
  7. VINDESINE SULFATE [Suspect]
     Active Substance: VINDESINE SULFATE
     Dosage: DAY1; VINDESINE FOR INJECTION (4MG) + 0.9% NS (20ML); THIRD CYCLE;
     Route: 040
     Dates: start: 20190411, end: 20190411
  8. ETOPOSIDE [Suspect]
     Active Substance: ETOPOSIDE
     Indication: Follicular lymphoma
     Dosage: PRIOR (1ST TWO CYCLES OF BIOLOGICAL CHEMOTHERAPY);
     Route: 041
  9. ETOPOSIDE [Suspect]
     Active Substance: ETOPOSIDE
     Dosage: DAY1 TO DAY 3; ETOPOSIDE INJECTION (150MG) + 0.9% NS (500ML); 3RD CYCLE;
     Route: 041
     Dates: start: 20190411, end: 20190413

REACTIONS (2)
  - Myelosuppression [Recovering/Resolving]
  - Alanine aminotransferase increased [Unknown]

NARRATIVE: CASE EVENT DATE: 20190425
